FAERS Safety Report 8313377-1 (Version None)
Quarter: 2012Q2

REPORT INFORMATION
  Report Type: 
  Country: None (occurrence: None)
  Receive Date: 20120426
  Receipt Date: 20120420
  Transmission Date: 20120825
  Serious: Yes (Death)
  Sender: FDA-Public Use
  Company Number: PHHY2012BR034211

PATIENT
  Sex: Female

DRUGS (1)
  1. EXELON [Suspect]
     Indication: DEMENTIA ALZHEIMER'S TYPE
     Dosage: 4.6 MG, (9MG/5CM2, 1 ADHESIVE DAILY)
     Route: 062

REACTIONS (4)
  - HAEMORRHAGE [None]
  - RENAL FAILURE [None]
  - DEMENTIA [None]
  - DRUG INEFFECTIVE [None]
